FAERS Safety Report 24544694 (Version 1)
Quarter: 2024Q4

REPORT INFORMATION
  Report Type: Spontaneous
  Country: IT (occurrence: IT)
  Receive Date: 20241024
  Receipt Date: 20241024
  Transmission Date: 20250115
  Serious: Yes (Hospitalization)
  Sender: HIKMA
  Company Number: None

PATIENT
  Age: 44 Year
  Sex: Male
  Weight: 84 kg

DRUGS (3)
  1. FLUOROURACIL [Suspect]
     Active Substance: FLUOROURACIL
     Indication: Product used for unknown indication
     Dosage: 4000 MILLIGRAM, 3W
     Route: 042
     Dates: start: 20240717, end: 20240903
  2. CISPLATIN [Interacting]
     Active Substance: CISPLATIN
     Indication: Product used for unknown indication
     Dosage: 100 MILLIGRAM, 3W
     Route: 042
     Dates: start: 20240717, end: 20240830
  3. PEMBROLIZUMAB [Interacting]
     Active Substance: PEMBROLIZUMAB
     Indication: Product used for unknown indication
     Dosage: 200 MILLIGRAM, 3W
     Route: 042
     Dates: start: 20240717, end: 20240830

REACTIONS (2)
  - Diarrhoea [Recovered/Resolved]
  - Mucosal inflammation [Recovered/Resolved]

NARRATIVE: CASE EVENT DATE: 20240720
